FAERS Safety Report 6768892-9 (Version None)
Quarter: 2010Q2

REPORT INFORMATION
  Report Type: 
  Country: None (occurrence: None)
  Receive Date: 20100603
  Receipt Date: 20100525
  Transmission Date: 20101027
  Serious: Yes (Hospitalization)
  Sender: FDA-Public Use
  Company Number: 2009SP009772

PATIENT
  Age: 54 Year
  Sex: Female

DRUGS (4)
  1. PEG-INTRON [Suspect]
     Indication: HEPATITIS C
     Dates: start: 20090205, end: 20090430
  2. PEG-INTRON [Suspect]
     Indication: HEPATITIS C
     Dates: start: 20090509, end: 20090509
  3. REBETOL [Suspect]
     Indication: HEPATITIS C
     Dosage: PO ; PO
     Route: 048
     Dates: start: 20090205, end: 20090430
  4. REBETOL [Suspect]
     Indication: HEPATITIS C
     Dosage: PO ; PO
     Route: 048
     Dates: start: 20090509, end: 20090509

REACTIONS (7)
  - FALL [None]
  - GASTRIC HAEMORRHAGE [None]
  - HEAD INJURY [None]
  - HEPATIC ENZYME INCREASED [None]
  - LOSS OF CONSCIOUSNESS [None]
  - PLATELET COUNT DECREASED [None]
  - RECTAL HAEMORRHAGE [None]
